FAERS Safety Report 12210405 (Version 1)
Quarter: 2016Q1

REPORT INFORMATION
  Report Type: Spontaneous
  Country: US (occurrence: US)
  Receive Date: 20160325
  Receipt Date: 20160325
  Transmission Date: 20160526
  Serious: Yes (Hospitalization)
  Sender: FDA-Public Use
  Company Number: US-SA-2016SA056337

PATIENT
  Age: 67 Year
  Sex: Female
  Weight: 42.9 kg

DRUGS (1)
  1. MOZOBIL [Suspect]
     Active Substance: PLERIXAFOR
     Indication: HAEMATOPOIETIC STEM CELL MOBILISATION
     Dosage: ROUTE OF INJECTION WAS 0.5 ML SUBCUTANEOUSLY. LOWER RIGHT ABDOMEN
     Route: 058

REACTIONS (3)
  - Ileus [Recovered/Resolved]
  - Abdominal pain [Recovered/Resolved]
  - Vomiting [Recovered/Resolved]
